FAERS Safety Report 4437096-7 (Version None)
Quarter: 2004Q3

REPORT INFORMATION
  Report Type: 
  Country: None (occurrence: None)
  Receive Date: 20040830
  Receipt Date: 20040823
  Transmission Date: 20050211
  Serious: Yes (Other)
  Sender: FDA-Public Use
  Company Number: US-BRISTOL-MYERS SQUIBB COMPANY-12680583

PATIENT
  Sex: Female

DRUGS (1)
  1. SINEMET [Suspect]

REACTIONS (1)
  - CATARACT [None]
